FAERS Safety Report 10173943 (Version 1)
Quarter: 2014Q2

REPORT INFORMATION
  Report Type: Spontaneous
  Country: IT (occurrence: IT)
  Receive Date: 20140515
  Receipt Date: 20140515
  Transmission Date: 20141212
  Serious: Yes (Hospitalization)
  Sender: FDA-Public Use
  Company Number: IT-009507513-1405ITA006250

PATIENT
  Age: 66 Year
  Sex: Female

DRUGS (3)
  1. REBETOL [Suspect]
     Indication: HEPATITIS C
     Dosage: 1000 MG, QD
     Route: 048
     Dates: start: 20131015
  2. VICTRELIS [Suspect]
     Indication: HEPATITIS C
     Dosage: 2400 MG, QD
     Route: 048
     Dates: start: 20131115
  3. PEGASYS [Suspect]
     Indication: HEPATITIS C
     Dosage: 180 MCG, QW
     Route: 058
     Dates: start: 20131015

REACTIONS (1)
  - Lobar pneumonia [Recovered/Resolved]
